FAERS Safety Report 8226911-7 (Version None)
Quarter: 2012Q1

REPORT INFORMATION
  Report Type: 
  Country: None (occurrence: None)
  Receive Date: 20120322
  Receipt Date: 20120313
  Transmission Date: 20120608
  Serious: Yes (Other)
  Sender: FDA-Public Use
  Company Number: US-BAYER-2011-101139

PATIENT
  Age: 25 Year
  Sex: Female
  Weight: 68.027 kg

DRUGS (1)
  1. DROSPIRENONE AND ETHINYL ESTRADIOL [Suspect]
     Indication: CONTRACEPTION
     Dosage: UNK
     Dates: start: 20100801, end: 20110101

REACTIONS (7)
  - PALPITATIONS [None]
  - PAIN [None]
  - ANXIETY [None]
  - SUPRAVENTRICULAR TACHYCARDIA [None]
  - GENERAL PHYSICAL HEALTH DETERIORATION [None]
  - ANHEDONIA [None]
  - EMOTIONAL DISTRESS [None]
